FAERS Safety Report 12454580 (Version 1)
Quarter: 2016Q2

REPORT INFORMATION
  Report Type: Spontaneous
  Country: US (occurrence: None)
  Receive Date: 20160609
  Receipt Date: 20160609
  Transmission Date: 20160815
  Serious: Yes (Life-Threatening, Other)
  Sender: FDA-Public Use
  Company Number: None

PATIENT
  Age: 53 Year
  Sex: Female
  Weight: 61.24 kg

DRUGS (9)
  1. TUMERIC [Concomitant]
     Active Substance: TURMERIC
  2. COD LIVER OIL [Concomitant]
     Active Substance: COD LIVER OIL
  3. VITAMIN D [Concomitant]
     Active Substance: CHOLECALCIFEROL
  4. S-ADENOSYLMETHIONINE SULFATE P-TOLUENESULFONATE [Concomitant]
     Active Substance: ADEMETIONINE SULFATE TOSILATE
  5. DEPLIN [Concomitant]
     Active Substance: LEVOMEFOLATE CALCIUM
  6. WELLBUTRIN SR [Concomitant]
     Active Substance: BUPROPION HYDROCHLORIDE
  7. TRINTELLIX [Suspect]
     Active Substance: VORTIOXETINE HYDROBROMIDE
     Indication: DEPRESSION
     Route: 048
     Dates: start: 20160518, end: 20160601
  8. ZINC [Concomitant]
     Active Substance: ZINC\ZINC CHLORIDE
  9. MULI VITAMIN [Concomitant]

REACTIONS (1)
  - Suicidal ideation [None]

NARRATIVE: CASE EVENT DATE: 20160601
